FAERS Safety Report 6592337-5 (Version None)
Quarter: 2010Q1

REPORT INFORMATION
  Report Type: 
  Country: None (occurrence: None)
  Receive Date: 20100221
  Receipt Date: 20090930
  Transmission Date: 20100710
  Serious: No
  Sender: FDA-Public Use
  Company Number: US-ALLERGAN-0913651US

PATIENT
  Age: 54 Year
  Sex: Female

DRUGS (4)
  1. BOTOX COSMETIC [Suspect]
     Indication: SKIN WRINKLING
     Dosage: 32 UNITS, SINGLE
     Route: 030
     Dates: start: 20090930, end: 20090930
  2. BETACAINE/LIDOCAINE [Concomitant]
     Indication: LOCAL ANAESTHESIA
     Dosage: UNK
     Route: 061
     Dates: start: 20090930, end: 20090930
  3. RESTYLANE [Concomitant]
  4. MULTI-VITAMIN [Concomitant]

REACTIONS (4)
  - INJECTION SITE NODULE [None]
  - NODULE [None]
  - PRURITUS [None]
  - WRONG TECHNIQUE IN DRUG USAGE PROCESS [None]
